FAERS Safety Report 24205849 (Version 1)
Quarter: 2024Q3

REPORT INFORMATION
  Report Type: Report from Study
  Country: US (occurrence: US)
  Receive Date: 20240813
  Receipt Date: 20240813
  Transmission Date: 20241017
  Serious: Yes (Other)
  Sender: NOVARTIS
  Company Number: US-002147023-NVSC2024US117878

PATIENT
  Sex: Male

DRUGS (1)
  1. TASIGNA [Suspect]
     Active Substance: NILOTINIB
     Indication: Parkinson^s disease
     Dosage: UNK
     Route: 065

REACTIONS (6)
  - Parkinson^s disease [Unknown]
  - Dementia [Unknown]
  - Autonomic nervous system imbalance [Unknown]
  - Amnesia [Unknown]
  - Syncope [Unknown]
  - Off label use [Unknown]
